FAERS Safety Report 6086981-1 (Version None)
Quarter: 2009Q1

REPORT INFORMATION
  Report Type: 
  Country: None (occurrence: None)
  Receive Date: 20090223
  Receipt Date: 20090211
  Transmission Date: 20090719
  Serious: Yes (Death)
  Sender: FDA-Public Use
  Company Number: US-BIOGENIDEC-2008BI029423

PATIENT
  Sex: Male

DRUGS (1)
  1. TYSABRI [Suspect]
     Indication: MULTIPLE MYELOMA
     Route: 042
     Dates: start: 20081016, end: 20081016

REACTIONS (1)
  - NEOPLASM MALIGNANT [None]
